FAERS Safety Report 24766470 (Version 1)
Quarter: 2024Q4

REPORT INFORMATION
  Report Type: Spontaneous
  Country: US (occurrence: US)
  Receive Date: 20241223
  Receipt Date: 20241223
  Transmission Date: 20250115
  Serious: No
  Sender: PFIZER
  Company Number: US-BRISTOL-MYERS SQUIBB COMPANY-2024-194002

PATIENT
  Sex: Male

DRUGS (24)
  1. ELIQUIS [Suspect]
     Active Substance: APIXABAN
     Indication: Thrombosis
     Dosage: 5 MG, 2X/DAY
  2. VYNDAMAX [Suspect]
     Active Substance: TAFAMIDIS
     Dosage: UNK
  3. BUMETANIDE [Suspect]
     Active Substance: BUMETANIDE
     Dosage: 1 MG, 2X/DAY
  4. MINOXIDIL [Suspect]
     Active Substance: MINOXIDIL
     Indication: Blood pressure measurement
     Dosage: 10 MG HALF DAY (4 YEAR)
  5. POTASSIUM CHLORIDE [Suspect]
     Active Substance: POTASSIUM CHLORIDE
     Dosage: 20 MEQ, 1X/DAY
  6. SPIRONOLACTONE [Suspect]
     Active Substance: SPIRONOLACTONE
     Dosage: 25 MG, 1X/DAY
  7. ENTRESTO [Suspect]
     Active Substance: SACUBITRIL\VALSARTAN
     Dosage: 103 MG, 2X/DAY
  8. ASPIRIN [Suspect]
     Active Substance: ASPIRIN
     Dosage: UNK
  9. MENTHOL [Suspect]
     Active Substance: MENTHOL
     Dosage: UNK
  10. TRELEGY ELLIPTA [Suspect]
     Active Substance: FLUTICASONE FUROATE\UMECLIDINIUM BROMIDE\VILANTEROL TRIFENATATE
     Dosage: UNK
  11. COLCHICINE [Suspect]
     Active Substance: COLCHICINE
     Dosage: 0.6 MG, 2X/DAY
  12. FLUTICASONE [Suspect]
     Active Substance: FLUTICASONE
     Dosage: UNK
  13. JARDIANCE [Suspect]
     Active Substance: EMPAGLIFLOZIN
     Dosage: 25 MG, 1X/DAY, 4 YEAR
  14. LINZESS [Suspect]
     Active Substance: LINACLOTIDE
     Indication: Gastrointestinal disorder
     Dosage: 145 MCG/ML, QD (4 YEAR)
  15. MUCINEX DM [Suspect]
     Active Substance: DEXTROMETHORPHAN HYDROBROMIDE\GUAIFENESIN
     Dosage: UNK
  16. PRAVASTATIN [Suspect]
     Active Substance: PRAVASTATIN
     Dosage: 40 MG, 1X/DAY, 4 YEAR
  17. TAMSULOSIN [Suspect]
     Active Substance: TAMSULOSIN
     Dosage: 0.4 MG, 1X/DAY
  18. ATENOLOL [Suspect]
     Active Substance: ATENOLOL
     Dosage: 50 MG, 1X/DAY, 4 YEAR
  19. IRON [Concomitant]
     Active Substance: IRON
     Dosage: UNK
  20. PANTOPRAZOLE [Concomitant]
     Active Substance: PANTOPRAZOLE
     Dosage: UNK
  21. VITAMIN A [Concomitant]
     Active Substance: VITAMIN A
     Dosage: UNK
  22. VALSARTAN [Concomitant]
     Active Substance: VALSARTAN
     Dosage: UNK
  23. TRIAMTERENE [Concomitant]
     Active Substance: TRIAMTERENE
     Dosage: UNK
  24. FERROUS SULFATE [Concomitant]
     Active Substance: FERROUS SULFATE
     Dosage: UNK

REACTIONS (3)
  - Back pain [Not Recovered/Not Resolved]
  - Fatigue [Unknown]
  - Somnolence [Not Recovered/Not Resolved]
